FAERS Safety Report 4288093-6 (Version None)
Quarter: 2004Q1

REPORT INFORMATION
  Report Type: 
  Country: None (occurrence: None)
  Receive Date: 20040209
  Receipt Date: 20030814
  Transmission Date: 20041129
  Serious: Yes (Other)
  Sender: FDA-Public Use
  Company Number: US-GLAXOSMITHKLINE-A0421247A

PATIENT
  Age: 32 Year
  Sex: Female

DRUGS (1)
  1. PAXIL [Suspect]
     Indication: DEPRESSION
     Dosage: 20MG PER DAY
     Route: 048
     Dates: start: 20030401, end: 20030810

REACTIONS (3)
  - ALOPECIA [None]
  - DIZZINESS [None]
  - HALLUCINATION, AUDITORY [None]
